FAERS Safety Report 7804722-1 (Version None)
Quarter: 2011Q4

REPORT INFORMATION
  Report Type: 
  Country: None (occurrence: None)
  Receive Date: 20111010
  Receipt Date: 20111005
  Transmission Date: 20120403
  Serious: Yes (Other)
  Sender: FDA-Public Use
  Company Number: DE-JNJFOC-20110902783

PATIENT
  Age: 77 Year
  Sex: Female

DRUGS (1)
  1. IMODIUM AD [Suspect]
     Indication: DIARRHOEA
     Route: 048

REACTIONS (5)
  - DRY MOUTH [None]
  - HEADACHE [None]
  - HAEMATOCHEZIA [None]
  - CONSTIPATION [None]
  - DIZZINESS [None]
